FAERS Safety Report 8501817-4 (Version None)
Quarter: 2012Q3

REPORT INFORMATION
  Report Type: 
  Country: None (occurrence: None)
  Receive Date: 20120705
  Receipt Date: 20120705
  Transmission Date: 20120928
  Serious: Yes (Hospitalization)
  Sender: FDA-Public Use
  Company Number: None

PATIENT
  Age: 55 Year
  Sex: Male
  Weight: 91.4 kg

DRUGS (1)
  1. INSULIN [Suspect]
     Indication: TYPE 1 DIABETES MELLITUS
     Dosage: 95 UNITS HS SQ
     Route: 058
     Dates: start: 20100630, end: 20120626

REACTIONS (4)
  - DEPRESSION [None]
  - WEIGHT DECREASED [None]
  - HYPOGLYCAEMIA [None]
  - HYPOPHAGIA [None]
